FAERS Safety Report 23751401 (Version 1)
Quarter: 2024Q2

REPORT INFORMATION
  Report Type: Spontaneous
  Country: IT (occurrence: IT)
  Receive Date: 20240417
  Receipt Date: 20240417
  Transmission Date: 20240715
  Serious: Yes (Life-Threatening, Hospitalization)
  Sender: FDA-Public Use
  Company Number: None

PATIENT
  Age: 74 Year
  Sex: Male

DRUGS (9)
  1. OXALIPLATIN [Suspect]
     Active Substance: OXALIPLATIN
     Indication: Oesophageal adenocarcinoma
     Dates: start: 20240312, end: 20240312
  2. RUPATADINE FUMARATE [Concomitant]
     Active Substance: RUPATADINE FUMARATE
  3. METFORMIN HYDROCHLORIDE [Concomitant]
     Active Substance: METFORMIN HYDROCHLORIDE
  4. UMECLIDINIUM [Concomitant]
     Active Substance: UMECLIDINIUM
  5. ASPIRIN [Concomitant]
     Active Substance: ASPIRIN
  6. EZETIMIBE\ROSUVASTATIN [Concomitant]
     Active Substance: EZETIMIBE\ROSUVASTATIN
  7. CARVEDILOL [Concomitant]
     Active Substance: CARVEDILOL
  8. NORVASC [Concomitant]
     Active Substance: AMLODIPINE BESYLATE
  9. PREDNISONE [Concomitant]
     Active Substance: PREDNISONE

REACTIONS (5)
  - Respiratory failure [Recovered/Resolved]
  - Urinary incontinence [Recovered/Resolved]
  - Cyanosis [Recovered/Resolved]
  - Feeling hot [Recovered/Resolved]
  - Hyperhidrosis [Recovered/Resolved]

NARRATIVE: CASE EVENT DATE: 20240312
